FAERS Safety Report 25423730 (Version 1)
Quarter: 2025Q2

REPORT INFORMATION
  Report Type: Report from Study
  Country: US (occurrence: US)
  Receive Date: 20250611
  Receipt Date: 20250611
  Transmission Date: 20250717
  Serious: Yes (Other)
  Sender: ALEXION PHARMACEUTICALS
  Company Number: US-AstraZeneca-CH-00888487A

PATIENT
  Weight: 60.327 kg

DRUGS (3)
  1. ACALABRUTINIB [Suspect]
     Active Substance: ACALABRUTINIB
     Indication: Mantle cell lymphoma
     Dosage: 100 MILLIGRAM, BID
  2. IRON [Concomitant]
     Active Substance: IRON
     Route: 065
  3. Immunoglobulin [Concomitant]
     Route: 065

REACTIONS (3)
  - Nausea [Recovering/Resolving]
  - Blood iron decreased [Recovering/Resolving]
  - Immunodeficiency [Recovering/Resolving]
